FAERS Safety Report 7316305-0 (Version None)
Quarter: 2011Q1

REPORT INFORMATION
  Report Type: 
  Country: None (occurrence: None)
  Receive Date: 20110225
  Receipt Date: 20110211
  Transmission Date: 20110831
  Serious: Yes (Disabling)
  Sender: FDA-Public Use
  Company Number: US-CELGENEUS-163-21880-10082808

PATIENT
  Sex: Female

DRUGS (5)
  1. REVLIMID [Suspect]
     Indication: MULTIPLE MYELOMA
     Route: 048
     Dates: start: 20091230, end: 20100312
  2. REVLIMID [Suspect]
     Route: 048
     Dates: start: 20100319, end: 20100416
  3. DECADRON [Concomitant]
     Indication: MULTIPLE MYELOMA
     Route: 065
     Dates: start: 20091230, end: 20100416
  4. COMPAZINE [Concomitant]
     Indication: MULTIPLE MYELOMA
     Route: 048
     Dates: start: 20091230, end: 20100416
  5. PRILOSEC [Concomitant]
     Indication: MULTIPLE MYELOMA
     Route: 048
     Dates: start: 20091230, end: 20100416

REACTIONS (5)
  - LEFT VENTRICULAR HYPERTROPHY [None]
  - SKIN LESION [None]
  - FLUID RETENTION [None]
  - BLOOD ALBUMIN DECREASED [None]
  - VENOUS INSUFFICIENCY [None]
